FAERS Safety Report 9222835 (Version 1)
Quarter: 2013Q2

REPORT INFORMATION
  Report Type: Spontaneous
  Country: NL (occurrence: NL)
  Receive Date: 20130410
  Receipt Date: 20130410
  Transmission Date: 20140414
  Serious: Yes (Hospitalization)
  Sender: FDA-Public Use
  Company Number: NL-ROCHE-1205625

PATIENT
  Age: 76 Year
  Sex: Female

DRUGS (2)
  1. ZELBORAF [Suspect]
     Indication: PRODUCT USED FOR UNKNOWN INDICATION
     Route: 048
     Dates: start: 20120716
  2. ZELBORAF [Suspect]
     Dosage: DOSE REDUCED
     Route: 048

REACTIONS (7)
  - Nausea [Unknown]
  - Vomiting [Unknown]
  - Fatigue [Recovered/Resolved]
  - Dehydration [Unknown]
  - Malaise [Unknown]
  - Nausea [Unknown]
  - Diarrhoea [Unknown]
